FAERS Safety Report 4284390-9 (Version None)
Quarter: 2004Q1

REPORT INFORMATION
  Report Type: 
  Country: None (occurrence: None)
  Receive Date: 20040130
  Receipt Date: 20040108
  Transmission Date: 20041129
  Serious: Yes (Hospitalization)
  Sender: FDA-Public Use
  Company Number: USA040156166

PATIENT
  Age: 85 Year
  Sex: Female

DRUGS (4)
  1. FORTEO [Suspect]
     Indication: OSTEOPOROSIS
     Dosage: 20 UG/DAY
     Dates: start: 20031001
  2. FLEXERIL [Concomitant]
  3. VIOXX [Concomitant]
  4. PERCOCET [Concomitant]

REACTIONS (1)
  - MUSCULOSKELETAL STIFFNESS [None]
